FAERS Safety Report 15194092 (Version 1)
Quarter: 2018Q3

REPORT INFORMATION
  Report Type: Report from Study
  Country: BE (occurrence: BE)
  Receive Date: 20180725
  Receipt Date: 20180725
  Transmission Date: 20181010
  Serious: Yes (Hospitalization)
  Sender: FDA-Public Use
  Company Number: BE-ROCHE-2158835

PATIENT
  Age: 84 Year
  Sex: Male

DRUGS (1)
  1. PIRFENIDONE. [Suspect]
     Active Substance: PIRFENIDONE
     Indication: IDIOPATHIC PULMONARY FIBROSIS
     Route: 065

REACTIONS (4)
  - Dizziness [Recovered/Resolved]
  - Discomfort [Recovered/Resolved]
  - Fatigue [Not Recovered/Not Resolved]
  - Decreased appetite [Recovered/Resolved]

NARRATIVE: CASE EVENT DATE: 20150824
